FAERS Safety Report 5012621-6 (Version None)
Quarter: 2006Q2

REPORT INFORMATION
  Report Type: 
  Country: None (occurrence: None)
  Receive Date: 20060411
  Receipt Date: 20060119
  Transmission Date: 20061013
  Serious: No
  Sender: FDA-Public Use
  Company Number: 2006S1000016

PATIENT
  Age: 70 Year
  Sex: Male
  Weight: 102 kg

DRUGS (11)
  1. CUBICIN [Suspect]
     Indication: OSTEOMYELITIS
     Dosage: 425 MG;Q24H;IV
     Route: 042
  2. LEVOFLOXACIN [Suspect]
     Indication: OSTEOMYELITIS
     Dosage: 500 MG;Q24H
     Dates: start: 20051101, end: 20060102
  3. METOPROLOL TARTRATE [Concomitant]
  4. LISINOPRIL [Concomitant]
  5. HYDROCHLOROTHIAZIDE [Concomitant]
  6. WARFARIN SODIUM [Concomitant]
  7. CELCOXIB [Concomitant]
  8. PREGABALIN [Concomitant]
  9. ZOLPIDEM TARTRATE [Concomitant]
  10. LEVOFLOXACIN [Concomitant]
  11. VICODIN [Concomitant]

REACTIONS (3)
  - MUSCULOSKELETAL STIFFNESS [None]
  - MYALGIA [None]
  - PAIN IN EXTREMITY [None]
